FAERS Safety Report 9754357 (Version 3)
Quarter: 2014Q1

REPORT INFORMATION
  Report Type: Spontaneous
  Country: US (occurrence: US)
  Receive Date: 20131213
  Receipt Date: 20140122
  Transmission Date: 20141002
  Serious: Yes (Hospitalization)
  Sender: FDA-Public Use
  Company Number: US-BRISTOL-MYERS SQUIBB COMPANY-19886951

PATIENT
  Sex: 0

DRUGS (1)
  1. ABILIFY [Suspect]

REACTIONS (3)
  - Parkinson^s disease [Unknown]
  - Fall [Unknown]
  - Spinal fracture [Unknown]
